FAERS Safety Report 23040366 (Version 2)
Quarter: 2023Q4

REPORT INFORMATION
  Report Type: Report from Study
  Country: ES (occurrence: ES)
  Receive Date: 20231006
  Receipt Date: 20231030
  Transmission Date: 20240109
  Serious: Yes (Hospitalization)
  Sender: FDA-Public Use
  Company Number: ES-PFIZER INC-PV202300162835

PATIENT
  Age: 71 Year
  Sex: Female
  Weight: 67.7 kg

DRUGS (5)
  1. LEUCOVORIN CALCIUM [Suspect]
     Active Substance: LEUCOVORIN CALCIUM
     Indication: Colorectal cancer
     Dosage: 708 MG, EVERY 2 WEEKS
     Route: 042
     Dates: start: 20230801, end: 20230912
  2. BEVACIZUMAB [Suspect]
     Active Substance: BEVACIZUMAB
     Indication: Colorectal cancer
     Dosage: 349 MG,  EVERY 2 WEEKS
     Route: 042
     Dates: start: 20230801, end: 20230912
  3. FLUOROURACIL [Suspect]
     Active Substance: FLUOROURACIL
     Indication: Colorectal cancer
     Dosage: 708 MG, EVERY 2 WEEKS
     Route: 040
     Dates: start: 20230801, end: 20230912
  4. FLUOROURACIL [Suspect]
     Active Substance: FLUOROURACIL
     Dosage: 4248 MG, EVERY 2 WEEKS
     Route: 042
     Dates: start: 20230801, end: 20230912
  5. OXALIPLATIN [Suspect]
     Active Substance: OXALIPLATIN
     Indication: Colorectal cancer
     Dosage: 150.45 MG, EVERY 2 WEEKS
     Route: 042
     Dates: start: 20230801, end: 20230912

REACTIONS (1)
  - Febrile neutropenia [Recovered/Resolved]

NARRATIVE: CASE EVENT DATE: 20230922
